FAERS Safety Report 4766430-3 (Version None)
Quarter: 2005Q3

REPORT INFORMATION
  Report Type: 
  Country: None (occurrence: None)
  Receive Date: 20050912
  Receipt Date: 20050830
  Transmission Date: 20060218
  Serious: Yes (Other)
  Sender: FDA-Public Use
  Company Number: AU-ROCHE-415896

PATIENT
  Age: 53 Year
  Sex: Male
  Weight: 88 kg

DRUGS (3)
  1. CAPECITABINE [Suspect]
     Dosage: TAKEN FOR TWO WEEKS OUT OF EACH THREE WEEK CYCLE
     Route: 048
     Dates: start: 20050426, end: 20050830
  2. BEVACIZUMAB [Suspect]
     Route: 042
     Dates: start: 20050426, end: 20050830
  3. OXALIPLATIN [Suspect]
     Route: 042
     Dates: start: 20050426, end: 20050830

REACTIONS (1)
  - DIABETES MELLITUS [None]
